FAERS Safety Report 9124876 (Version 3)
Quarter: 2013Q2

REPORT INFORMATION
  Report Type: Spontaneous
  Country: DE (occurrence: DE)
  Receive Date: 20130227
  Receipt Date: 20130529
  Transmission Date: 20140414
  Serious: Yes (Death, Hospitalization)
  Sender: FDA-Public Use
  Company Number: DE-ELI_LILLY_AND_COMPANY-DE201302007963

PATIENT
  Age: 79 Year
  Sex: Male
  Weight: 74 kg

DRUGS (6)
  1. ALIMTA [Suspect]
     Indication: LUNG ADENOCARCINOMA METASTATIC
     Dosage: 1000 MG, UNK
     Route: 042
     Dates: start: 20121217
  2. CARBOPLATIN [Concomitant]
     Indication: LUNG ADENOCARCINOMA METASTATIC
     Dosage: 300 MG, UNK
     Dates: start: 20121217
  3. VITAMIN B12 [Concomitant]
  4. FOLSAN [Concomitant]
     Dosage: 0.4 MG, UNK
  5. KEVATRIL [Concomitant]
     Dosage: 1 MG, UNK
     Route: 048
     Dates: start: 20121217
  6. DEXAMETHASONE [Concomitant]
     Dosage: 8 MG, UNK
     Dates: start: 20121217

REACTIONS (12)
  - Renal failure [Fatal]
  - Sepsis [Fatal]
  - General physical health deterioration [Unknown]
  - Nausea [Unknown]
  - Vomiting [Unknown]
  - Pancytopenia [Not Recovered/Not Resolved]
  - Mucosal inflammation [Unknown]
  - Pyrexia [Recovered/Resolved]
  - Oesophagitis [Unknown]
  - Gastritis [Unknown]
  - Helicobacter test positive [Unknown]
  - Off label use [Unknown]
